FAERS Safety Report 5388654-7 (Version None)
Quarter: 2007Q3

REPORT INFORMATION
  Report Type: 
  Country: None (occurrence: None)
  Receive Date: 20070716
  Receipt Date: 20070629
  Transmission Date: 20080115
  Serious: Yes (Other)
  Sender: FDA-Public Use
  Company Number: FR-GENENTECH-244076

PATIENT
  Sex: Male

DRUGS (1)
  1. MABTHERA [Suspect]
     Indication: RHEUMATOID ARTHRITIS
     Route: 042
     Dates: start: 20070615, end: 20070615

REACTIONS (3)
  - C-REACTIVE PROTEIN INCREASED [None]
  - HEPATIC ENZYME ABNORMAL [None]
  - RED BLOOD CELL SEDIMENTATION RATE INCREASED [None]
